FAERS Safety Report 24182571 (Version 1)
Quarter: 2024Q3

REPORT INFORMATION
  Report Type: Report from Study
  Country: ZA (occurrence: ZA)
  Receive Date: 20240807
  Receipt Date: 20240807
  Transmission Date: 20241017
  Serious: Yes (Hospitalization)
  Sender: BIOVITRUM
  Company Number: ZA-AstraZeneca-2022A202064

PATIENT
  Age: 97 Day
  Sex: Female
  Weight: 2.5 kg

DRUGS (1)
  1. SYNAGIS [Suspect]
     Active Substance: PALIVIZUMAB
     Indication: Antiviral prophylaxis
     Dosage: MONTHLY
     Route: 030
     Dates: start: 20220330

REACTIONS (1)
  - Genital swelling [Unknown]

NARRATIVE: CASE EVENT DATE: 20220525
